FAERS Safety Report 8919238 (Version 1)
Quarter: 2012Q4

REPORT INFORMATION
  Report Type: 
  Country: US (occurrence: US)
  Receive Date: 20121121
  Receipt Date: 20121121
  Transmission Date: 20130627
  Serious: Yes (Other)
  Sender: FDA-Public Use
  Company Number: US-PFIZER INC-2012290337

PATIENT
  Age: 90 Year
  Sex: Female
  Weight: 57.6 kg

DRUGS (4)
  1. VISTARIL [Suspect]
     Indication: BLADDER INCONTINENCE
     Dosage: UNK, 1x/day
     Route: 048
     Dates: end: 201209
  2. GABAPENTIN [Concomitant]
     Dosage: UNK
  3. VITAMIN K [Concomitant]
     Dosage: UNK
  4. ACTONEL [Concomitant]
     Dosage: UNK

REACTIONS (5)
  - Rectal prolapse [Unknown]
  - Dry mouth [Unknown]
  - Constipation [Unknown]
  - Gastrointestinal motility disorder [Unknown]
  - Off label use [Unknown]
